FAERS Safety Report 4803953-2 (Version None)
Quarter: 2005Q3

REPORT INFORMATION
  Report Type: 
  Country: None (occurrence: None)
  Receive Date: 20050920
  Receipt Date: 20050615
  Transmission Date: 20060218
  Serious: No
  Sender: FDA-Public Use
  Company Number: US-YAMANOUCHI-YPA20050326

PATIENT
  Age: 73 Year
  Sex: Female

DRUGS (12)
  1. VESICARE [Suspect]
     Dosage: 5 MG PO
     Route: 048
     Dates: start: 20050613
  2. EVISTA [Concomitant]
  3. METOPROLOL [Concomitant]
  4. GLUCOTROL [Concomitant]
  5. PREDNISONE TAB [Concomitant]
  6. OXYGEN [Concomitant]
  7. ALBUTEROL [Concomitant]
  8. ZOLOFT [Concomitant]
  9. LIPITOR [Concomitant]
  10. ADVAIR DISKUS 100/50 [Concomitant]
  11. ASPIRIN [Concomitant]
  12. MULTI-VITAMINS [Concomitant]

REACTIONS (6)
  - BLOOD GLUCOSE INCREASED [None]
  - DRUG INEFFECTIVE [None]
  - DRY MOUTH [None]
  - INCREASED APPETITE [None]
  - MUSCLE SPASMS [None]
  - VISION BLURRED [None]
